FAERS Safety Report 7159325-1 (Version None)
Quarter: 2010Q4

REPORT INFORMATION
  Report Type: 
  Country: None (occurrence: None)
  Receive Date: 20101214
  Receipt Date: 20100818
  Transmission Date: 20110411
  Serious: No
  Sender: FDA-Public Use
  Company Number: US-ASTRAZENECA-2010SE38877

PATIENT
  Age: 75 Year
  Sex: Female

DRUGS (3)
  1. CRESTOR [Suspect]
     Indication: HYPERCHOLESTEROLAEMIA
     Route: 048
     Dates: start: 20100101, end: 20100701
  2. CRESTOR [Suspect]
     Route: 048
     Dates: start: 20100801
  3. VITAMINS [Concomitant]

REACTIONS (1)
  - OEDEMA PERIPHERAL [None]
